FAERS Safety Report 10504993 (Version 2)
Quarter: 2015Q3

REPORT INFORMATION
  Report Type: Spontaneous
  Country: US (occurrence: US)
  Receive Date: 20140926
  Receipt Date: 20150930
  Transmission Date: 20151125
  Serious: Yes (Other)
  Sender: FDA-Public Use
  Company Number: US-MDCO-14-00081

PATIENT
  Age: 68 Year
  Sex: Male

DRUGS (1)
  1. CLEVIPREX [Suspect]
     Active Substance: CLEVIDIPINE
     Indication: MALIGNANT HYPERTENSION
     Dosage: 1 MG/HR (INITIAL) AND 16 MG/HR (MAX)
     Dates: start: 20140107, end: 20140109

REACTIONS (1)
  - Atrial fibrillation [Recovered/Resolved]

NARRATIVE: CASE EVENT DATE: 20140108
